FAERS Safety Report 4981839-0 (Version None)
Quarter: 2006Q2

REPORT INFORMATION
  Report Type: 
  Country: None (occurrence: None)
  Receive Date: 20060421
  Receipt Date: 20060421
  Transmission Date: 20061013
  Serious: No
  Sender: FDA-Public Use
  Company Number: None

PATIENT
  Sex: Female
  Weight: 104.3273 kg

DRUGS (10)
  1. CEFEPIME [Suspect]
     Indication: PNEUMONIA
     Dosage: 2 GM Q12H IV
     Route: 042
     Dates: start: 20060328, end: 20060402
  2. ZITHROMAX [Suspect]
     Dosage: 250 MG Q48 PO
     Route: 048
     Dates: start: 20060328, end: 20060402
  3. ACTOS [Concomitant]
  4. GLUCOPHAGE [Concomitant]
  5. METHADONE HCL [Concomitant]
  6. PROTONIX [Concomitant]
  7. QUININE [Concomitant]
  8. SINGULAIR [Concomitant]
  9. ZESTRIL [Concomitant]
  10. CLONIDINE [Concomitant]

REACTIONS (2)
  - ANXIETY [None]
  - PRURITUS GENERALISED [None]
